FAERS Safety Report 16160156 (Version 2)
Quarter: 2019Q2

REPORT INFORMATION
  Report Type: Report from Study
  Country: US (occurrence: US)
  Receive Date: 20190404
  Receipt Date: 20190510
  Transmission Date: 20190711
  Serious: Yes (Hospitalization)
  Sender: FDA-Public Use
  Company Number: US-ACTELION-A-US2019-188540

PATIENT
  Age: 76 Year
  Sex: Male

DRUGS (22)
  1. OPSUMIT [Suspect]
     Active Substance: MACITENTAN
     Indication: PULMONARY ARTERIAL HYPERTENSION
     Dosage: 10 MG, QD
     Route: 048
     Dates: start: 201803
  2. SPIRIVA [Concomitant]
     Active Substance: TIOTROPIUM BROMIDE MONOHYDRATE
  3. PREDNISONE. [Concomitant]
     Active Substance: PREDNISONE
  4. LASIX [Concomitant]
     Active Substance: FUROSEMIDE
  5. PEPCID [Concomitant]
     Active Substance: FAMOTIDINE
  6. METOPROLOL. [Concomitant]
     Active Substance: METOPROLOL
  7. ASPIRIN. [Concomitant]
     Active Substance: ASPIRIN
  8. GUAIFENESIN. [Concomitant]
     Active Substance: GUAIFENESIN
  9. POTASSIUM CHLORIDE. [Concomitant]
     Active Substance: POTASSIUM CHLORIDE
  10. COLACE [Concomitant]
     Active Substance: DOCUSATE SODIUM
  11. CELEXA [Concomitant]
     Active Substance: CITALOPRAM HYDROBROMIDE
  12. DIGOXIN. [Concomitant]
     Active Substance: DIGOXIN
  13. REVATIO [Concomitant]
     Active Substance: SILDENAFIL CITRATE
  14. VENTOLIN HFA [Concomitant]
     Active Substance: ALBUTEROL SULFATE
  15. ALBUTEROL. [Concomitant]
     Active Substance: ALBUTEROL
  16. METOLAZONE. [Concomitant]
     Active Substance: METOLAZONE
  17. GABAPENTIN. [Concomitant]
     Active Substance: GABAPENTIN
  18. ADVAIR HFA [Concomitant]
     Active Substance: FLUTICASONE PROPIONATE\SALMETEROL XINAFOATE
  19. SENNA [Concomitant]
     Active Substance: SENNA LEAF\SENNOSIDES\SENNOSIDES A AND B
  20. WARFARIN [Concomitant]
     Active Substance: WARFARIN
  21. LIPITOR [Concomitant]
     Active Substance: ATORVASTATIN CALCIUM
  22. HYTRIN [Concomitant]
     Active Substance: TERAZOSIN HYDROCHLORIDE

REACTIONS (8)
  - Dyspnoea [Recovering/Resolving]
  - Hypokalaemia [Recovered/Resolved]
  - Acute respiratory failure [Unknown]
  - Blood potassium increased [Recovered/Resolved]
  - Device defective [Unknown]
  - Hypoxia [Recovered/Resolved]
  - Chronic obstructive pulmonary disease [Unknown]
  - Blood potassium decreased [Recovered/Resolved]

NARRATIVE: CASE EVENT DATE: 20190222
